FAERS Safety Report 23104608 (Version 1)
Quarter: 2023Q4

REPORT INFORMATION
  Report Type: Other
  Country: None (occurrence: HU)
  Receive Date: 20231025
  Receipt Date: 20231025
  Transmission Date: 20240109
  Serious: Yes (Hospitalization, Other)
  Sender: FDA-Public Use
  Company Number: HU-Appco Pharma LLC-2147440

PATIENT
  Sex: Male

DRUGS (2)
  1. CLINDAMYCIN PALMITATE HYDROCHLORIDE [Suspect]
     Active Substance: CLINDAMYCIN PALMITATE HYDROCHLORIDE
     Indication: Klebsiella infection
     Route: 065
  2. MEROPENEM [Suspect]
     Active Substance: MEROPENEM
     Route: 065

REACTIONS (1)
  - Drug ineffective [Unknown]
